FAERS Safety Report 11004718 (Version 1)
Quarter: 2015Q2

REPORT INFORMATION
  Report Type: Spontaneous
  Country: US (occurrence: US)
  Receive Date: 20150409
  Receipt Date: 20150409
  Transmission Date: 20150821
  Serious: Yes (Other)
  Sender: FDA-Public Use
  Company Number: US-PFIZER INC-2015118943

PATIENT
  Age: 31 Year
  Sex: Female

DRUGS (8)
  1. ZANAFLEX [Concomitant]
     Active Substance: TIZANIDINE HYDROCHLORIDE
     Indication: MUSCLE SPASMS
     Dosage: 4 MG, 2X/DAY AS NEEDED
     Route: 048
  2. ALBUTEROL SULFATE. [Concomitant]
     Active Substance: ALBUTEROL SULFATE
     Dosage: 0.63 MG/3ML NEBU AS NEEDED
  3. LYRICA [Suspect]
     Active Substance: PREGABALIN
     Dosage: 200 MG, 3X/DAY
     Route: 048
  4. PERCOCET [Concomitant]
     Active Substance: ACETAMINOPHEN\OXYCODONE HYDROCHLORIDE
     Indication: PAIN
     Dosage: 10-325 MG 3X/DAY AS NEEDED
     Route: 048
  5. FIORICET [Concomitant]
     Active Substance: ACETAMINOPHEN\BUTALBITAL\CAFFEINE
     Indication: HEADACHE
     Dosage: (50-325-40 MG), 1 TO 2  TWICE DAILY AS NEEDED
     Route: 048
  6. MICROGESTIN FE [Concomitant]
     Active Substance: ETHINYL ESTRADIOL\FERROUS FUMARATE\NORETHINDRONE ACETATE
     Dosage: 1/20 1-20 MG-MCG TABS ONCE DAILY
     Route: 048
  7. EPIDRIN [Concomitant]
     Indication: MIGRAINE
     Dosage: (325-65-100 MG) 1 TO 2  TWICE DAILY AS NEEDED
     Route: 048
  8. LIDODERM [Concomitant]
     Active Substance: LIDOCAINE
     Dosage: 1 TO 2 PATCHES Q12 HOURS,12 HOURS ON AND 12 HOURS OFF

REACTIONS (9)
  - Lumbar radiculopathy [Unknown]
  - Restless legs syndrome [Unknown]
  - Migraine [Unknown]
  - Intervertebral disc protrusion [Unknown]
  - Muscular weakness [Unknown]
  - Lumbosacral plexus lesion [Unknown]
  - Neck pain [Unknown]
  - Pain in extremity [Unknown]
  - Arthropathy [Unknown]
